FAERS Safety Report 7387468-6 (Version None)
Quarter: 2011Q1

REPORT INFORMATION
  Report Type: 
  Country: None (occurrence: None)
  Receive Date: 20110331
  Receipt Date: 20110321
  Transmission Date: 20110831
  Serious: Yes (Other)
  Sender: FDA-Public Use
  Company Number: US-BAXTER-2009BH009978

PATIENT
  Age: 27 Year
  Sex: Female

DRUGS (9)
  1. SOMA [Concomitant]
     Indication: PAIN
     Route: 048
  2. PHENERGAN HCL [Suspect]
     Indication: NAUSEA
     Route: 042
     Dates: start: 20081021, end: 20081022
  3. PHENERGAN HCL [Suspect]
     Route: 030
     Dates: start: 20081023, end: 20081001
  4. AMLODIPINE [Concomitant]
     Indication: HYPERTENSION
     Route: 048
  5. XANAX [Concomitant]
     Indication: ANXIETY
     Route: 048
  6. PANCREASE [Concomitant]
     Indication: PANCREATITIS CHRONIC
     Route: 048
  7. LORTAB [Concomitant]
     Indication: PAIN
     Route: 048
  8. AMOXICILLIN [Concomitant]
     Indication: ORAL SURGERY
     Route: 048
  9. PLAQUENIL [Concomitant]
     Indication: SYSTEMIC LUPUS ERYTHEMATOSUS
     Route: 048

REACTIONS (6)
  - URINARY TRACT INFECTION [None]
  - EXTREMITY NECROSIS [None]
  - KLEBSIELLA BACTERAEMIA [None]
  - EXTRAVASATION [None]
  - CARPAL TUNNEL SYNDROME [None]
  - ESCHERICHIA INFECTION [None]
